FAERS Safety Report 6524271-0 (Version None)
Quarter: 2009Q4

REPORT INFORMATION
  Report Type: 
  Country: None (occurrence: None)
  Receive Date: 20091230
  Receipt Date: 20091230
  Transmission Date: 20100525
  Serious: Yes (Hospitalization)
  Sender: FDA-Public Use
  Company Number: None

PATIENT
  Age: 71 Year
  Sex: Male
  Weight: 100.7 kg

DRUGS (7)
  1. CLINDAMYCIN [Suspect]
     Indication: SKIN INFECTION
     Dosage: 400MG PO Q8H
     Route: 048
     Dates: start: 20090916
  2. M.V.I. [Concomitant]
  3. FISH OIL [Concomitant]
  4. VITAMINS B AND E [Concomitant]
  5. CALCIUM/VITAMIN D [Concomitant]
  6. OXYCODONE HCL AND ACETAMINOPHEN [Concomitant]
  7. PROBIOTICS [Concomitant]

REACTIONS (2)
  - CLOSTRIDIAL INFECTION [None]
  - HAEMATOCHEZIA [None]
